FAERS Safety Report 8778395 (Version 7)
Quarter: 2014Q2

REPORT INFORMATION
  Report Type: Report from Study
  Country: FR (occurrence: FR)
  Receive Date: 20120912
  Receipt Date: 20140528
  Transmission Date: 20141212
  Serious: Yes (Hospitalization)
  Sender: FDA-Public Use
  Company Number: FR-VERTEX PHARMACEUTICAL INC.-000000000000001395

PATIENT
  Age: 46 Year
  Sex: Female
  Weight: 60 kg

DRUGS (10)
  1. VX-950 (TELAPREVIR) [Suspect]
     Indication: HEPATITIS C
     Dosage: 750 MG, QD (3 TABLETS IN AM AND 2 TABLETS IN PM)
     Route: 048
     Dates: start: 20120511, end: 20120706
  2. VX-950 (TELAPREVIR) [Suspect]
     Dosage: 750 MG, BID
     Route: 048
     Dates: start: 20120706, end: 20120706
  3. COPEGUS [Suspect]
     Indication: HEPATITIS C
     Dosage: 1000 MG, QD
     Route: 048
     Dates: start: 20120713, end: 20120801
  4. COPEGUS [Suspect]
     Dosage: 1000 MG, BID
     Route: 048
     Dates: start: 20120511, end: 20120712
  5. PEGINTERFERON ALFA-2A [Suspect]
     Indication: HEPATITIS C
     Dosage: 180 MG, QW
     Route: 058
     Dates: start: 20120511, end: 20120713
  6. PEGINTERFERON ALFA-2A [Suspect]
     Dosage: UNK
     Route: 058
     Dates: end: 20120801
  7. DOLIPRANE [Concomitant]
     Indication: PRODUCT USED FOR UNKNOWN INDICATION
     Dosage: 1000 MG, PRN
     Route: 048
     Dates: start: 20120511
  8. PROCTOLOG [Concomitant]
     Indication: PRODUCT USED FOR UNKNOWN INDICATION
     Dosage: 1 DF, QD
     Route: 061
     Dates: start: 20120515
  9. AERIUS [Concomitant]
     Indication: PRODUCT USED FOR UNKNOWN INDICATION
     Dosage: UNK, QD
     Route: 048
     Dates: start: 20120713, end: 20120913
  10. ERYPLAST [Concomitant]
     Indication: PRODUCT USED FOR UNKNOWN INDICATION
     Dosage: UNK, BID
     Route: 061
     Dates: start: 20120713, end: 20120801

REACTIONS (1)
  - Toxic skin eruption [Recovered/Resolved]
